FAERS Safety Report 5903000-5 (Version None)
Quarter: 2008Q3

REPORT INFORMATION
  Report Type: 
  Country: None (occurrence: None)
  Receive Date: 20080930
  Receipt Date: 20080924
  Transmission Date: 20090109
  Serious: Yes (Other)
  Sender: FDA-Public Use
  Company Number: US-BAYER-200830571NA

PATIENT
  Age: 59 Year
  Sex: Female

DRUGS (3)
  1. AVELOX [Suspect]
     Indication: UPPER RESPIRATORY TRACT INFECTION
     Dosage: UNIT DOSE: 400 MG
     Route: 048
  2. LIPITOR [Concomitant]
     Indication: BLOOD CHOLESTEROL INCREASED
     Dates: start: 20040521
  3. PREMARIN [Concomitant]
     Dates: start: 20040521

REACTIONS (7)
  - ANXIETY [None]
  - DEPRESSION [None]
  - FEELING GUILTY [None]
  - FEELING OF DESPAIR [None]
  - HEART RATE INCREASED [None]
  - MENTAL DISORDER [None]
  - NERVOUSNESS [None]
